FAERS Safety Report 18344577 (Version 1)
Quarter: 2020Q4

REPORT INFORMATION
  Report Type: Spontaneous
  Country: US (occurrence: US)
  Receive Date: 20201005
  Receipt Date: 20201005
  Transmission Date: 20210114
  Serious: No
  Sender: FDA-Public Use
  Company Number: US-TEVA-2020-US-1834555

PATIENT
  Age: 22 Year
  Sex: Female

DRUGS (1)
  1. BUPROPION HYDROCHLORIDE. [Suspect]
     Active Substance: BUPROPION HYDROCHLORIDE
     Dosage: FORM OF ADMIN: EXTENDED RELEASE TABLET
     Route: 048

REACTIONS (2)
  - Documented hypersensitivity to administered product [Unknown]
  - Dyspnoea [Recovered/Resolved]
